FAERS Safety Report 7933638-5 (Version None)
Quarter: 2011Q4

REPORT INFORMATION
  Report Type: 
  Country: None (occurrence: None)
  Receive Date: 20111122
  Receipt Date: 20111118
  Transmission Date: 20120403
  Serious: Yes (Life-Threatening, Other)
  Sender: FDA-Public Use
  Company Number: DE-ROCHE-1002454

PATIENT
  Sex: Female

DRUGS (2)
  1. XOLAIR [Suspect]
     Indication: ASTHMA
     Dates: start: 20090128
  2. XOLAIR [Suspect]
     Dates: end: 20110708

REACTIONS (3)
  - COLONIC POLYP [None]
  - GASTRITIS [None]
  - COLON CANCER [None]
